FAERS Safety Report 9946981 (Version 1)
Quarter: 2014Q1

REPORT INFORMATION
  Report Type: Report from Study
  Country: US (occurrence: US)
  Receive Date: 20140303
  Receipt Date: 20140303
  Transmission Date: 20141002
  Serious: No
  Sender: FDA-Public Use
  Company Number: US-ABBVIE-13P-163-1062897-00

PATIENT
  Age: 30 Year
  Sex: Female

DRUGS (4)
  1. HUMIRA [Suspect]
     Indication: HIDRADENITIS
     Dates: start: 20130108
  2. NUVIGIL [Concomitant]
     Indication: SLEEP DISORDER
     Dosage: 40 MG DAILY
  3. CELEXA [Concomitant]
     Indication: DEPRESSION
     Dosage: 10 MG DAILY
  4. DOXYCYCLINE [Concomitant]
     Indication: HIDRADENITIS
     Dosage: 400 MG DAILY

REACTIONS (4)
  - Polycystic ovaries [Unknown]
  - Drug dose omission [Unknown]
  - Anxiety [Unknown]
  - Depression [Unknown]
